FAERS Safety Report 10160598 (Version 2)
Quarter: 2014Q2

REPORT INFORMATION
  Report Type: Spontaneous
  Country: DE (occurrence: DE)
  Receive Date: 20140508
  Receipt Date: 20140602
  Transmission Date: 20141212
  Serious: Yes (Other)
  Sender: FDA-Public Use
  Company Number: DE-BRISTOL-MYERS SQUIBB COMPANY-20714804

PATIENT
  Age: 55 Year
  Sex: Male

DRUGS (1)
  1. LITALIR [Suspect]
     Indication: CHRONIC MYELOID LEUKAEMIA

REACTIONS (2)
  - Malignant neoplasm progression [Unknown]
  - Gene mutation [Unknown]
